FAERS Safety Report 6759022-8 (Version None)
Quarter: 2010Q2

REPORT INFORMATION
  Report Type: 
  Country: None (occurrence: None)
  Receive Date: 20100607
  Receipt Date: 20100531
  Transmission Date: 20101027
  Serious: Yes (Hospitalization)
  Sender: FDA-Public Use
  Company Number: FR-ASTRAZENECA-2010SE24973

PATIENT
  Age: 20993 Day
  Sex: Male

DRUGS (5)
  1. CRESTOR [Suspect]
     Indication: DYSLIPIDAEMIA
     Route: 048
     Dates: start: 20100421, end: 20100525
  2. SANDOGLOBULIN [Suspect]
     Route: 042
     Dates: start: 20100426, end: 20100427
  3. CONTRAMAL [Suspect]
     Indication: NEURALGIA
     Route: 048
     Dates: start: 20100421, end: 20100525
  4. RIVOTRIL [Suspect]
     Indication: NEURALGIA
     Route: 048
     Dates: start: 20100421, end: 20100525
  5. FORLAX [Suspect]
     Indication: CONSTIPATION
     Route: 048
     Dates: start: 20100421, end: 20100525

REACTIONS (2)
  - DYSHIDROSIS [None]
  - ECZEMA [None]
